FAERS Safety Report 11903850 (Version 1)
Quarter: 2016Q1

REPORT INFORMATION
  Report Type: Spontaneous
  Country: US (occurrence: US)
  Receive Date: 20160108
  Receipt Date: 20160108
  Transmission Date: 20160526
  Serious: No
  Sender: FDA-Public Use
  Company Number: US-009507513-1512USA014579

PATIENT
  Sex: Female

DRUGS (1)
  1. ASMANEX [Suspect]
     Active Substance: MOMETASONE FUROATE
     Indication: ASTHMA
     Dosage: 220 MICROGRAM, 1 STANDARD DOSE OF 60
     Route: 055
     Dates: start: 2005

REACTIONS (4)
  - Dyspnoea [Unknown]
  - Fatigue [Unknown]
  - Drug dose omission [Unknown]
  - Product quality issue [Unknown]
